FAERS Safety Report 24560637 (Version 1)
Quarter: 2024Q4

REPORT INFORMATION
  Report Type: Spontaneous
  Country: US (occurrence: None)
  Receive Date: 20241028
  Receipt Date: 20241028
  Transmission Date: 20250114
  Serious: Yes (Life-Threatening, Hospitalization)
  Sender: Public
  Company Number: None

PATIENT
  Age: 70 Year
  Sex: Male

DRUGS (2)
  1. EMPAGLIFLOZIN [Suspect]
     Active Substance: EMPAGLIFLOZIN
     Indication: Diabetes mellitus
     Dosage: OTHER FREQUENCY : EVERY AM;?
     Route: 048
  2. DEVICE [Suspect]
     Active Substance: DEVICE

REACTIONS (5)
  - Confusional state [None]
  - Sepsis [None]
  - Urinary tract infection [None]
  - Asthenia [None]
  - Benign prostatic hyperplasia [None]

NARRATIVE: CASE EVENT DATE: 20240608
